FAERS Safety Report 6863433-X (Version None)
Quarter: 2010Q3

REPORT INFORMATION
  Report Type: 
  Country: None (occurrence: None)
  Receive Date: 20100721
  Receipt Date: 20100712
  Transmission Date: 20110219
  Serious: Yes (Other)
  Sender: FDA-Public Use
  Company Number: US-ABBOTT-10P-163-0654902-00

PATIENT
  Sex: Female
  Weight: 59.928 kg

DRUGS (2)
  1. SYNTHROID [Suspect]
     Indication: HYPOTHYROIDISM
     Route: 048
     Dates: start: 19800101
  2. COSOPT [Concomitant]
     Indication: CATARACT
     Route: 047

REACTIONS (4)
  - BREAST CANCER [None]
  - DRUG INEFFECTIVE [None]
  - JOINT INJURY [None]
  - PRODUCT QUALITY ISSUE [None]
